FAERS Safety Report 10728208 (Version 1)
Quarter: 2015Q1

REPORT INFORMATION
  Report Type: Spontaneous
  Country: DK (occurrence: DK)
  Receive Date: 20150121
  Receipt Date: 20150121
  Transmission Date: 20150721
  Serious: Yes (Hospitalization)
  Sender: FDA-Public Use
  Company Number: DK-ASTRAZENECA-2015SE03833

PATIENT
  Age: 15550 Day
  Sex: Female

DRUGS (10)
  1. MALFIN [Concomitant]
     Dosage: DOSIS: 20 MG + 10 MG
  2. PANTOPRAZOLE [Concomitant]
     Active Substance: PANTOPRAZOLE SODIUM
     Indication: GASTROOESOPHAGEAL REFLUX DISEASE
  3. KALEORID [Concomitant]
     Active Substance: POTASSIUM CHLORIDE
     Indication: ELECTROLYTE SUBSTITUTION THERAPY
  4. PINEX [Concomitant]
     Active Substance: ACETAMINOPHEN
     Indication: PAIN
  5. NOVORAPID [Concomitant]
     Active Substance: INSULIN ASPART
     Dosage: DOSERES EFTER SKEMA
  6. OXAPAX [Concomitant]
     Active Substance: OXAZEPAM
  7. MERONEM [Suspect]
     Active Substance: MEROPENEM
     Indication: PANCREATITIS NECROTISING
     Route: 042
     Dates: start: 20141113, end: 20141120
  8. CLOPIDOGREL [Concomitant]
     Active Substance: CLOPIDOGREL BISULFATE
     Indication: THROMBOSIS PROPHYLAXIS
  9. FURIX [Concomitant]
     Active Substance: FUROSEMIDE
     Dosage: DOSIS: 80 MG + 40 MG
  10. ENACODAN [Concomitant]
     Indication: HYPERTENSION

REACTIONS (4)
  - Eosinophilia [Recovered/Resolved]
  - Rash maculo-papular [Recovering/Resolving]
  - C-reactive protein increased [Recovering/Resolving]
  - Oedema peripheral [Recovering/Resolving]

NARRATIVE: CASE EVENT DATE: 20141113
